FAERS Safety Report 6654122-5 (Version None)
Quarter: 2010Q1

REPORT INFORMATION
  Report Type: 
  Country: None (occurrence: None)
  Receive Date: 20100326
  Receipt Date: 20100319
  Transmission Date: 20100710
  Serious: Yes (Hospitalization)
  Sender: FDA-Public Use
  Company Number: US-AMGEN-KDC400825

PATIENT
  Age: 64 Year
  Sex: Male
  Weight: 59.7 kg

DRUGS (24)
  1. PANITUMUMAB [Suspect]
     Indication: SQUAMOUS CELL CARCINOMA
  2. DOCETAXEL [Suspect]
     Route: 042
     Dates: start: 20100223
  3. CISPLATIN [Suspect]
     Route: 042
     Dates: start: 20100223
  4. FLUOROURACIL [Suspect]
     Route: 042
     Dates: start: 20100223
  5. AMITRIPTYLINE [Concomitant]
  6. NICOTINE [Concomitant]
  7. DECADRON [Concomitant]
  8. DILTIAZEM HCL [Concomitant]
  9. ASPIRIN [Concomitant]
  10. ERYTHROMYCIN [Concomitant]
  11. GABAPENTIN [Concomitant]
  12. GINGKO BILOBA [Concomitant]
  13. GLUCOSAMINE [Concomitant]
  14. KAPIDEX [Concomitant]
  15. KEFLEX [Concomitant]
  16. LIDOCAINE [Concomitant]
  17. MAALOX [Concomitant]
  18. DIPHENHYDRAMINE HYDROCHLORIDE [Concomitant]
  19. LIPITOR [Concomitant]
  20. METOCLOPRAMIDE [Concomitant]
  21. OXCARBAZEPINE [Concomitant]
  22. OXYCODONE [Concomitant]
  23. VALIUM [Concomitant]
  24. ZOFRAN [Concomitant]

REACTIONS (3)
  - DIARRHOEA [None]
  - FEBRILE NEUTROPENIA [None]
  - URINARY RETENTION [None]
